FAERS Safety Report 22521514 (Version 1)
Quarter: 2023Q2

REPORT INFORMATION
  Report Type: Spontaneous
  Country: FR (occurrence: FR)
  Receive Date: 20230605
  Receipt Date: 20230605
  Transmission Date: 20230722
  Serious: Yes (Other)
  Sender: FDA-Public Use
  Company Number: None

PATIENT
  Age: 38 Year
  Sex: Male

DRUGS (2)
  1. PREGABALIN [Suspect]
     Active Substance: PREGABALIN
     Indication: Product used for unknown indication
     Dosage: 300 MILLIGRAM, QD (300 MG/DAY)
     Route: 065
     Dates: start: 202211
  2. CANNABIS SATIVA SUBSP. INDICA TOP [Suspect]
     Active Substance: CANNABIS SATIVA SUBSP. INDICA TOP
     Indication: Product used for unknown indication
     Dosage: ABOUT 10 JOINTS PER DAY
     Route: 055
     Dates: start: 2005

REACTIONS (3)
  - Drug dependence [Not Recovered/Not Resolved]
  - Cannabinoid hyperemesis syndrome [Recovered/Resolved]
  - Product use in unapproved indication [Not Recovered/Not Resolved]
